FAERS Safety Report 15977862 (Version 2)
Quarter: 2019Q1

REPORT INFORMATION
  Report Type: Report from Study
  Country: US (occurrence: US)
  Receive Date: 20190218
  Receipt Date: 20190220
  Transmission Date: 20190418
  Serious: Yes (Hospitalization)
  Sender: FDA-Public Use
  Company Number: US-BRISTOL-MYERS SQUIBB COMPANY-BMS-2017-065515

PATIENT
  Age: 44 Year
  Sex: Male

DRUGS (10)
  1. BLINDED NIVOLUMAB [Suspect]
     Active Substance: NIVOLUMAB
     Indication: GLIOBLASTOMA
     Dosage: 240 MG, Q2WK
     Route: 042
     Dates: start: 20170523
  2. DALTEPARIN [Concomitant]
     Active Substance: DALTEPARIN
     Indication: PRODUCT USED FOR UNKNOWN INDICATION
     Dosage: 500 MG, QD
     Route: 058
  3. BLINDED PLACEBO [Suspect]
     Active Substance: INVESTIGATIONAL PRODUCT
     Indication: GLIOBLASTOMA
     Dosage: 240 MG, Q2WK
     Route: 042
     Dates: start: 20170523
  4. SMX/TMP [Concomitant]
     Active Substance: SULFAMETHOXAZOLE\TRIMETHOPRIM
     Indication: PRODUCT USED FOR UNKNOWN INDICATION
     Dosage: 480 MG, UNK
     Route: 065
     Dates: start: 20170523
  5. PANTOPRAZOLE [Concomitant]
     Active Substance: PANTOPRAZOLE
     Indication: PRODUCT USED FOR UNKNOWN INDICATION
     Dosage: 40 MG, UNK
     Route: 048
  6. METOCLOPRAMIDE. [Concomitant]
     Active Substance: METOCLOPRAMIDE
     Indication: PRODUCT USED FOR UNKNOWN INDICATION
     Dosage: 10 MG, PRN
     Route: 065
     Dates: start: 20170606
  7. PREDNISOLONE. [Concomitant]
     Active Substance: PREDNISOLONE
     Indication: PRODUCT USED FOR UNKNOWN INDICATION
     Dosage: 180 MG, UNK
     Route: 042
     Dates: start: 20170721, end: 20170722
  8. TEMOZOLOMIDE. [Suspect]
     Active Substance: TEMOZOLOMIDE
     Indication: GLIOBLASTOMA
     Dosage: 160 MG, QD
     Route: 048
     Dates: start: 20170523, end: 20170703
  9. ONDANSETRON [Concomitant]
     Active Substance: ONDANSETRON
     Indication: PRODUCT USED FOR UNKNOWN INDICATION
     Dosage: 8 MG, UNK
     Route: 065
     Dates: start: 20170523
  10. PREDNISOLONE. [Concomitant]
     Active Substance: PREDNISOLONE
     Indication: PRODUCT USED FOR UNKNOWN INDICATION
     Dosage: 90 MG, UNK
     Route: 048
     Dates: start: 20170723, end: 20170724

REACTIONS (1)
  - Diarrhoea [Recovered/Resolved]

NARRATIVE: CASE EVENT DATE: 20170721
